FAERS Safety Report 24250223 (Version 1)
Quarter: 2024Q3

REPORT INFORMATION
  Report Type: Spontaneous
  Country: US (occurrence: US)
  Receive Date: 20240826
  Receipt Date: 20240826
  Transmission Date: 20241017
  Serious: No
  Sender: pharmaAND
  Company Number: US-Pharmaand-2024000436

PATIENT
  Age: 60 Year
  Sex: Female
  Weight: 60.317 kg

DRUGS (1)
  1. PEGASYS [Suspect]
     Active Substance: PEGINTERFERON ALFA-2A
     Indication: Polycythaemia vera
     Dosage: 90 ?G, 1X/WEEK
     Dates: start: 20240501

REACTIONS (4)
  - Paraesthesia [Unknown]
  - White blood cell count decreased [Unknown]
  - Platelet count decreased [Unknown]
  - Off label use [Not Recovered/Not Resolved]

NARRATIVE: CASE EVENT DATE: 20240501
